FAERS Safety Report 19328896 (Version 3)
Quarter: 2021Q2

REPORT INFORMATION
  Report Type: Spontaneous
  Country: KR (occurrence: KR)
  Receive Date: 20210528
  Receipt Date: 20210628
  Transmission Date: 20210717
  Serious: Yes (Other)
  Sender: FDA-Public Use
  Company Number: KR-OTSUKA-2021_017736

PATIENT

DRUGS (2)
  1. ABILIFY [Suspect]
     Active Substance: ARIPIPRAZOLE
     Indication: BORDERLINE PERSONALITY DISORDER
     Dosage: 10 MG, UNK
     Route: 065
  2. OLANZAPINE. [Concomitant]
     Active Substance: OLANZAPINE
     Indication: BORDERLINE PERSONALITY DISORDER
     Dosage: UNK
     Route: 065

REACTIONS (2)
  - Acute kidney injury [Unknown]
  - Drug ineffective for unapproved indication [Unknown]
